FAERS Safety Report 5933142-X (Version None)
Quarter: 2008Q4

REPORT INFORMATION
  Report Type: 
  Country: None (occurrence: None)
  Receive Date: 20081023
  Receipt Date: 20060912
  Transmission Date: 20090506
  Serious: Yes (Hospitalization, Other)
  Sender: FDA-Public Use
  Company Number: 2006AL002785

PATIENT
  Sex: Female

DRUGS (5)
  1. DIGOXIN [Suspect]
     Dosage: .125 MCG;QD;PO
     Route: 048
  2. CHLORAMPHENICOL [Concomitant]
  3. FLUOXETINE [Concomitant]
  4. FRUSEMIDE [Concomitant]
  5. OMEPRAZOLE [Concomitant]

REACTIONS (3)
  - CONFUSIONAL STATE [None]
  - DRUG TOXICITY [None]
  - VOMITING [None]
